FAERS Safety Report 8899605 (Version 1)
Quarter: 2012Q4

REPORT INFORMATION
  Report Type: 
  Country: GB (occurrence: GB)
  Receive Date: 20121109
  Receipt Date: 20121109
  Transmission Date: 20130627
  Serious: Yes (Other)
  Sender: FDA-Public Use
  Company Number: GB-COVIDIEN/TYCO HEALTHCARE/MALLINCKRODT-T201203871

PATIENT
  Age: 56 Year
  Sex: Female

DRUGS (1)
  1. OPTIRAY [Suspect]
     Indication: UROGRAM
     Dosage: 75 ml, single, 3ml/sec
     Route: 042
     Dates: start: 20121106, end: 20121106

REACTIONS (4)
  - Throat tightness [Recovered/Resolved]
  - Sneezing [Recovered/Resolved]
  - Rash [Recovered/Resolved]
  - Anxiety [Recovered/Resolved]
